FAERS Safety Report 15657232 (Version 1)
Quarter: 2018Q4

REPORT INFORMATION
  Report Type: Spontaneous
  Country: US (occurrence: US)
  Receive Date: 20181126
  Receipt Date: 20181126
  Transmission Date: 20190205
  Serious: Yes (Hospitalization)
  Sender: FDA-Public Use
  Company Number: PHHY2018US157891

PATIENT
  Age: 43 Year
  Sex: Female

DRUGS (1)
  1. KETOROLAC [Suspect]
     Active Substance: KETOROLAC\KETOROLAC TROMETHAMINE
     Indication: PAIN
     Route: 065

REACTIONS (5)
  - Hypoaesthesia [Unknown]
  - Pain [Recovering/Resolving]
  - Asthenia [Unknown]
  - Spinal column stenosis [Unknown]
  - Extradural haematoma [Recovered/Resolved]
